FAERS Safety Report 20391725 (Version 1)
Quarter: 2022Q1

REPORT INFORMATION
  Report Type: Spontaneous
  Country: None (occurrence: US)
  Receive Date: 20220128
  Receipt Date: 20220128
  Transmission Date: 20220424
  Serious: No
  Sender: FDA-Public Use
  Company Number: US-Matrixx Initiatives, Inc.-2124401

PATIENT
  Age: 66 Year
  Sex: Female
  Weight: 65.909 kg

DRUGS (5)
  1. HOMEOPATHICS [Suspect]
     Active Substance: HOMEOPATHICS
     Indication: Nasopharyngitis
     Route: 045
  2. FELODIPINE [Concomitant]
     Active Substance: FELODIPINE
  3. EFFEXOR [Concomitant]
     Active Substance: VENLAFAXINE HYDROCHLORIDE
  4. AROMASIN [Concomitant]
     Active Substance: EXEMESTANE
  5. VITAMIN B [Concomitant]
     Active Substance: VITAMIN B

REACTIONS (1)
  - Anosmia [None]
